FAERS Safety Report 9849049 (Version 1)
Quarter: 2014Q1

REPORT INFORMATION
  Report Type: Spontaneous
  Country: US (occurrence: None)
  Receive Date: 20140124
  Receipt Date: 20140124
  Transmission Date: 20141002
  Serious: Yes (Hospitalization, Other)
  Sender: FDA-Public Use
  Company Number: None

PATIENT
  Age: 68 Year
  Sex: Male
  Weight: 77.11 kg

DRUGS (2)
  1. ALENDRONATE [Suspect]
     Indication: BONE DENSITY DECREASED
     Dosage: 70 MG   ONCE A WEEK?ABOUT 4 OR 5 YEARS
  2. ALENDRONATE [Suspect]
     Indication: PROPHYLAXIS
     Dosage: 70 MG   ONCE A WEEK?ABOUT 4 OR 5 YEARS

REACTIONS (1)
  - Femur fracture [None]
